FAERS Safety Report 5179170-6 (Version None)
Quarter: 2006Q4

REPORT INFORMATION
  Report Type: 
  Country: None (occurrence: None)
  Receive Date: 20061205
  Receipt Date: 20061124
  Transmission Date: 20070319
  Serious: Yes (Other)
  Sender: FDA-Public Use
  Company Number: FRWYE190729NOV05

PATIENT
  Age: 5 Year
  Sex: Male

DRUGS (4)
  1. REFACTO [Suspect]
     Indication: FACTOR VIII DEFICIENCY
     Dosage: PROPHYLAXIS: 1000 IU TOTAL WEEKLY, DIVIDED IN 3 DOSES, INTRAVENOUS, SEE IMAGE
     Route: 042
     Dates: start: 20030601, end: 20041129
  2. REFACTO [Suspect]
     Indication: FACTOR VIII DEFICIENCY
     Dosage: PROPHYLAXIS: 1000 IU TOTAL WEEKLY, DIVIDED IN 3 DOSES, INTRAVENOUS, SEE IMAGE
     Route: 042
     Dates: start: 20041130, end: 20050601
  3. REFACTO [Suspect]
     Indication: FACTOR VIII DEFICIENCY
     Dosage: PROPHYLAXIS: 1000 IU TOTAL WEEKLY, DIVIDED IN 3 DOSES, INTRAVENOUS, SEE IMAGE
     Route: 042
     Dates: start: 20050601, end: 20050717
  4. REFACTO [Suspect]
     Indication: FACTOR VIII DEFICIENCY
     Dosage: PROPHYLAXIS: 1000 IU TOTAL WEEKLY, DIVIDED IN 3 DOSES, INTRAVENOUS, SEE IMAGE
     Route: 042
     Dates: start: 20050718

REACTIONS (3)
  - COAGULATION FACTOR VIII LEVEL DECREASED [None]
  - DRUG EFFECT DECREASED [None]
  - HAEMARTHROSIS [None]
